FAERS Safety Report 23140996 (Version 1)
Quarter: 2023Q4

REPORT INFORMATION
  Report Type: Report from Study
  Country: US (occurrence: US)
  Receive Date: 20231103
  Receipt Date: 20231103
  Transmission Date: 20240110
  Serious: Yes (Hospitalization)
  Sender: FDA-Public Use
  Company Number: US-ABBVIE-5468458

PATIENT
  Sex: Male
  Weight: 97 kg

DRUGS (3)
  1. VENCLEXTA [Suspect]
     Active Substance: VENETOCLAX
     Indication: Acute lymphocytic leukaemia
     Dosage: T4T (400 MG) PO DAILY DAYS 1-7 OF EACH 28 DAY CYCLE?FIRST ADMIN DATE- 2023
     Route: 048
  2. VENCLEXTA [Suspect]
     Active Substance: VENETOCLAX
     Indication: Acute lymphocytic leukaemia
     Dosage: FORM STRENGTH 100 MILLIGRAM?TAKE FOUR TABLETS DAILY DAY ONE TO SEVEN?LAST ADMIN DATE- 2023
     Route: 048
     Dates: start: 20230915
  3. REVLIMID [Concomitant]
     Active Substance: LENALIDOMIDE
     Indication: Product used for unknown indication

REACTIONS (3)
  - Asthenia [Recovering/Resolving]
  - Product prescribing error [Unknown]
  - Off label use [Unknown]

NARRATIVE: CASE EVENT DATE: 20230101
